FAERS Safety Report 14202081 (Version 1)
Quarter: 2017Q4

REPORT INFORMATION
  Report Type: Spontaneous
  Country: US (occurrence: US)
  Receive Date: 20171117
  Receipt Date: 20171117
  Transmission Date: 20180321
  Serious: Yes (Other)
  Sender: FDA-Public Use
  Company Number: US-SAOL THERAPEUTICS-2017SAO01785

PATIENT
  Age: 54 Year
  Sex: Female

DRUGS (3)
  1. BUPIVICAINE [Suspect]
     Active Substance: BUPIVACAINE
     Route: 037
  2. HYDROMORPHONE [Suspect]
     Active Substance: HYDROMORPHONE
     Route: 037
  3. BACLOFEN. [Suspect]
     Active Substance: BACLOFEN
     Indication: PAIN
     Route: 037

REACTIONS (7)
  - Spinal disorder [Unknown]
  - Pain [Not Recovered/Not Resolved]
  - Underdose [Not Recovered/Not Resolved]
  - Arthritis [Unknown]
  - Overdose [Recovered/Resolved]
  - Off label use [Unknown]
  - Muscle spasms [Not Recovered/Not Resolved]

NARRATIVE: CASE EVENT DATE: 201704
